FAERS Safety Report 14342676 (Version 1)
Quarter: 2018Q1

REPORT INFORMATION
  Report Type: Spontaneous
  Country: GB (occurrence: GB)
  Receive Date: 20180102
  Receipt Date: 20180102
  Transmission Date: 20180509
  Serious: No
  Sender: FDA-Public Use
  Company Number: GB-CONCORDIA LABORATORIES INC.-2017-CLI-000018

PATIENT
  Age: 26 Year
  Sex: Male

DRUGS (4)
  1. PHOTOFRIN [Suspect]
     Active Substance: PORFIMER SODIUM
     Dosage: 1 MG/KG, UNK
     Route: 042
     Dates: start: 201501
  2. PHOTOFRIN [Suspect]
     Active Substance: PORFIMER SODIUM
     Indication: ALOPECIA SCARRING
     Dosage: 1 MG/KG, UNK
     Route: 042
     Dates: start: 201409
  3. PHOTOFRIN [Suspect]
     Active Substance: PORFIMER SODIUM
     Dosage: 1 MG/KG, UNK
     Route: 042
     Dates: start: 201503
  4. PHOTOFRIN [Suspect]
     Active Substance: PORFIMER SODIUM
     Dosage: 1 MG/KG, UNK
     Route: 042
     Dates: start: 201602

REACTIONS (2)
  - Photosensitivity reaction [Unknown]
  - Off label use [Unknown]

NARRATIVE: CASE EVENT DATE: 201409
